FAERS Safety Report 18844483 (Version 1)
Quarter: 2021Q1

REPORT INFORMATION
  Report Type: Report from Study
  Country: US (occurrence: US)
  Receive Date: 20210203
  Receipt Date: 20210203
  Transmission Date: 20210419
  Serious: No
  Sender: FDA-Public Use
  Company Number: US-EXELIXIS-CABO-20027791

PATIENT
  Sex: Female

DRUGS (1)
  1. CABOMETYX [Suspect]
     Active Substance: CABOZANTINIB S-MALATE
     Indication: PERIPHERAL NERVOUS SYSTEM NEOPLASM
     Dosage: 40 MG, QD
     Route: 048
     Dates: start: 20200128

REACTIONS (3)
  - Fatigue [Unknown]
  - Off label use [Unknown]
  - Nausea [Unknown]
